FAERS Safety Report 7785953-6 (Version None)
Quarter: 2011Q3

REPORT INFORMATION
  Report Type: 
  Country: None (occurrence: None)
  Receive Date: 20110929
  Receipt Date: 20110922
  Transmission Date: 20111222
  Serious: Yes (Other)
  Sender: FDA-Public Use
  Company Number: CN-PFIZER INC-2011226432

PATIENT
  Age: 84 Year
  Sex: Female

DRUGS (1)
  1. CEFOPERAZONE SODIUM [Suspect]
     Dosage: 1 G, 2X/DAY
     Route: 041
     Dates: start: 20051101, end: 20051101

REACTIONS (5)
  - PSYCHIATRIC SYMPTOM [None]
  - BLOOD CREATINE INCREASED [None]
  - AGGRESSION [None]
  - MANIA [None]
  - BLOOD UREA INCREASED [None]
